FAERS Safety Report 5018147-8 (Version None)
Quarter: 2006Q2

REPORT INFORMATION
  Report Type: 
  Country: None (occurrence: None)
  Receive Date: 20060526
  Receipt Date: 20060518
  Transmission Date: 20061013
  Serious: Yes (Other)
  Sender: FDA-Public Use
  Company Number: 2006BH010175

PATIENT
  Age: 26 Year
  Weight: 55 kg

DRUGS (1)
  1. FEIBA VH IMMUNO [Suspect]
     Indication: HAEMORRHAGE CONTROL
     Dosage: 98 U/KG;EVERY DAY;IV
     Route: 042

REACTIONS (1)
  - HAEMOGLOBIN DECREASED [None]
